FAERS Safety Report 18751992 (Version 1)
Quarter: 2021Q1

REPORT INFORMATION
  Report Type: Spontaneous
  Country: CN (occurrence: CN)
  Receive Date: 20210118
  Receipt Date: 20210118
  Transmission Date: 20210419
  Serious: Yes (Other)
  Sender: FDA-Public Use
  Company Number: CN-BAXTER-2021BAX000793

PATIENT
  Age: 84 Year
  Sex: Male
  Weight: 50 kg

DRUGS (14)
  1. ENDOXAN [Suspect]
     Active Substance: CYCLOPHOSPHAMIDE
     Dosage: DOSE RE?INTRODUCED; CYCLOPHOSPHAMIDE + NS
     Route: 041
  2. RITUXIMAB. [Suspect]
     Active Substance: RITUXIMAB
     Indication: DIFFUSE LARGE B-CELL LYMPHOMA
     Dosage: R?MINI CHOP CHEMOTHERAPY; RITUXIMAB 600 MG + NS 600 ML; DAY 0
     Route: 041
     Dates: start: 20200929, end: 20200929
  3. GAINUO [Suspect]
     Active Substance: VINORELBINE TARTRATE
     Dosage: DOSE RE?INTRODUCED; VINORELBINE TARTRATE + NS
     Route: 041
  4. DOXORUBICIN [Suspect]
     Active Substance: DOXORUBICIN
     Indication: DIFFUSE LARGE B-CELL LYMPHOMA
     Dosage: R?MINI CHOP CHEMOTHERAPY
     Route: 065
  5. 0.9% SODIUM CHLORIDE INJECTION [Suspect]
     Active Substance: SODIUM CHLORIDE
     Indication: MEDICATION DILUTION
     Dosage: DAY1; R?MINI CHOP CHEMOTHERAPY; CYCLOPHOSPHAMIDE 0.8 G + NS 100 ML
     Route: 041
     Dates: start: 20200930, end: 20200930
  6. GAINUO [Suspect]
     Active Substance: VINORELBINE TARTRATE
     Indication: DIFFUSE LARGE B-CELL LYMPHOMA
     Dosage: R?MINI CHOP CHEMOTHERAPY; VINORELBINE TARTRATE 30 MG + NS 100 ML; DAY 1
     Route: 041
     Dates: start: 20200930, end: 20200930
  7. ENDOXAN [Suspect]
     Active Substance: CYCLOPHOSPHAMIDE
     Indication: DIFFUSE LARGE B-CELL LYMPHOMA
     Dosage: DAY1; R?MINI CHOP CHEMOTHERAPY; CYCLOPHOSPHAMIDE 0.8 G + NS 100 ML
     Route: 041
     Dates: start: 20200930, end: 20200930
  8. 0.9% SODIUM CHLORIDE INJECTION [Suspect]
     Active Substance: SODIUM CHLORIDE
     Dosage: DOSE RE?INTRODUCED; RITUXIMAB + NS
     Route: 041
  9. PREDNISONE. [Suspect]
     Active Substance: PREDNISONE
     Indication: DIFFUSE LARGE B-CELL LYMPHOMA
     Dosage: R?MINI CHOP CHEMOTHERAPY, DAY 1 TO 5
     Route: 065
     Dates: start: 20200930, end: 20201004
  10. 0.9% SODIUM CHLORIDE INJECTION [Suspect]
     Active Substance: SODIUM CHLORIDE
     Dosage: DAY 1; R?MINI CHOP CHEMOTHERAPY; VINORELBINE TARTRATE 30 MG + NS 100 ML
     Route: 041
     Dates: start: 20200930, end: 20200930
  11. 0.9% SODIUM CHLORIDE INJECTION [Suspect]
     Active Substance: SODIUM CHLORIDE
     Dosage: DOSE RE?INTRODUCED; VINORELBINE TARTRATE + NS
     Route: 041
  12. 0.9% SODIUM CHLORIDE INJECTION [Suspect]
     Active Substance: SODIUM CHLORIDE
     Dosage: DOSE RE?INTRODUCED; CYCLOPHOSPHAMIDE + NS
     Route: 041
  13. 0.9% SODIUM CHLORIDE INJECTION [Suspect]
     Active Substance: SODIUM CHLORIDE
     Dosage: DAY 0; R?MINI CHOP CHEMOTHERAPY; RITUXIMAB 600 MG + NS 600 ML
     Route: 041
     Dates: start: 20200929, end: 20200929
  14. RITUXIMAB. [Suspect]
     Active Substance: RITUXIMAB
     Dosage: DOSE RE?INTRODUCED; RITUXIMAB + NS
     Route: 041

REACTIONS (1)
  - Myelosuppression [Unknown]

NARRATIVE: CASE EVENT DATE: 20201024
